FAERS Safety Report 23636447 (Version 1)
Quarter: 2024Q1

REPORT INFORMATION
  Report Type: Spontaneous
  Country: US (occurrence: None)
  Receive Date: 20240314
  Receipt Date: 20240314
  Transmission Date: 20240409
  Serious: Yes (Disabling)
  Sender: FDA-Public Use
  Company Number: None

PATIENT
  Age: 62 Year
  Sex: Female

DRUGS (11)
  1. PYRIDOXINE\SEMAGLUTIDE [Suspect]
     Active Substance: PYRIDOXINE\SEMAGLUTIDE
     Indication: Weight decreased
     Dosage: OTHER QUANTITY : 1 INJECTION(S);?OTHER FREQUENCY : WEEKLY;?
     Route: 058
     Dates: start: 20230517, end: 20230623
  2. Zoloft 50mg [Concomitant]
  3. Black Seed Oil [Concomitant]
  4. BIOTIN [Concomitant]
     Active Substance: BIOTIN
  5. Elemental Heal [Concomitant]
  6. Gasrto ULC [Concomitant]
  7. Enzalase [Concomitant]
  8. GI Synergy [Concomitant]
  9. GI Complete Powder [Concomitant]
  10. MAGNESIUM [Concomitant]
     Active Substance: MAGNESIUM
  11. PANTOPRAZOLE SODIUM [Concomitant]
     Active Substance: PANTOPRAZOLE SODIUM

REACTIONS (24)
  - Impaired gastric emptying [None]
  - Nausea [None]
  - Dyspepsia [None]
  - Decreased appetite [None]
  - Asthenia [None]
  - Eructation [None]
  - Yawning [None]
  - Abnormal dreams [None]
  - Abdominal distension [None]
  - Abdominal pain upper [None]
  - Constipation [None]
  - Dysgeusia [None]
  - Dyspnoea [None]
  - Palpitations [None]
  - Hiccups [None]
  - Oesophageal discomfort [None]
  - Dysphonia [None]
  - Vision blurred [None]
  - Dizziness [None]
  - Sluggishness [None]
  - Fear [None]
  - Anxiety [None]
  - Sleep disorder [None]
  - Affect lability [None]

NARRATIVE: CASE EVENT DATE: 20230524
